FAERS Safety Report 23222769 (Version 2)
Quarter: 2023Q4

REPORT INFORMATION
  Report Type: Report from Study
  Country: US (occurrence: US)
  Receive Date: 20231123
  Receipt Date: 20231207
  Transmission Date: 20240110
  Serious: Yes (Other)
  Sender: FDA-Public Use
  Company Number: US-ALXN-A202113695AA

PATIENT
  Age: 59 Year
  Sex: Male
  Weight: 124.7 kg

DRUGS (13)
  1. SOLIRIS [Suspect]
     Active Substance: ECULIZUMAB
     Indication: Myasthenia gravis
     Dosage: 900 MG, QW
     Route: 065
     Dates: start: 201902
  2. SOLIRIS [Suspect]
     Active Substance: ECULIZUMAB
     Dosage: 1200 MILLIGRAM, Q56
     Route: 065
     Dates: start: 20220418
  3. ULTOMIRIS [Suspect]
     Active Substance: RAVULIZUMAB-CWVZ
     Indication: Myasthenia gravis
     Dosage: 3000 MILLIGRAM
     Route: 065
     Dates: start: 20220907
  4. ULTOMIRIS [Suspect]
     Active Substance: RAVULIZUMAB-CWVZ
     Dosage: 3600 MILLIGRAM
     Route: 065
  5. PREDNISONE [Suspect]
     Active Substance: PREDNISONE
     Indication: Product used for unknown indication
     Dosage: 5 UNK, UNK
     Route: 048
     Dates: start: 20200303
  6. PREDNISONE [Suspect]
     Active Substance: PREDNISONE
     Dosage: 2.5 MG, TABLET
     Route: 048
     Dates: start: 20210802, end: 20211029
  7. IVIGLOB EX [Suspect]
     Active Substance: HUMAN IMMUNOGLOBULIN G
     Indication: Product used for unknown indication
     Dosage: 2G/KG
     Route: 065
     Dates: start: 202106
  8. LEVOTHYROXINE [Concomitant]
     Active Substance: LEVOTHYROXINE
     Indication: Product used for unknown indication
     Dosage: 175 ?G, UNK
     Route: 048
     Dates: start: 20191021
  9. LEVOTHYROXINE [Concomitant]
     Active Substance: LEVOTHYROXINE
     Dosage: 150 MICROGRAM, QD
     Route: 048
  10. ALLOPURINOL [Concomitant]
     Active Substance: ALLOPURINOL
     Indication: Product used for unknown indication
     Dosage: 300 MG, UNK
     Route: 048
     Dates: start: 20190930
  11. IBANDRONATE SODIUM [Concomitant]
     Active Substance: IBANDRONATE SODIUM
     Indication: Product used for unknown indication
     Dosage: 150 MG, EVERY 30 DAYS
     Route: 065
     Dates: start: 20210427
  12. LISINOPRIL [Concomitant]
     Active Substance: LISINOPRIL
     Indication: Product used for unknown indication
     Dosage: 10 MG, UNK
     Route: 048
     Dates: start: 20190930
  13. PRAVASTATIN [Concomitant]
     Active Substance: PRAVASTATIN
     Indication: Product used for unknown indication
     Dosage: 40 MG, UNK
     Route: 048
     Dates: start: 20191021

REACTIONS (13)
  - Choking [Unknown]
  - Aphasia [Unknown]
  - Weight increased [Unknown]
  - Muscular weakness [Unknown]
  - Muscle fatigue [Unknown]
  - Abdominal pain [Unknown]
  - Myalgia [Unknown]
  - Fatigue [Unknown]
  - Headache [Recovered/Resolved]
  - Nausea [Unknown]
  - Hypoaesthesia [Unknown]
  - Paraesthesia [Recovered/Resolved]
  - Productive cough [Unknown]

NARRATIVE: CASE EVENT DATE: 20190603
